FAERS Safety Report 21985570 (Version 1)
Quarter: 2023Q1

REPORT INFORMATION
  Report Type: Spontaneous
  Country: US (occurrence: US)
  Receive Date: 20230213
  Receipt Date: 20230213
  Transmission Date: 20230418
  Serious: No
  Sender: FDA-Public Use
  Company Number: US-PFIZER INC-PV202300026979

PATIENT
  Age: 24 Year
  Sex: Female

DRUGS (6)
  1. CIBINQO [Suspect]
     Active Substance: ABROCITINIB
     Indication: Eczema
     Dosage: UNK
     Dates: start: 202209
  2. CIBINQO [Suspect]
     Active Substance: ABROCITINIB
     Indication: Pruritus
     Dosage: 100 MG, DAILY
     Dates: start: 202210, end: 202212
  3. CIBINQO [Suspect]
     Active Substance: ABROCITINIB
     Indication: Dermatitis atopic
     Dosage: UNK
  4. CIBINQO [Suspect]
     Active Substance: ABROCITINIB
     Indication: Rash
  5. CIBINQO [Suspect]
     Active Substance: ABROCITINIB
     Indication: Rash pruritic
  6. CIBINQO [Suspect]
     Active Substance: ABROCITINIB
     Indication: Hand dermatitis

REACTIONS (2)
  - Therapeutic product effect incomplete [Unknown]
  - Groin pain [Unknown]
